FAERS Safety Report 8688391 (Version 2)
Quarter: 2012Q4

REPORT INFORMATION
  Report Type: 
  Country: JP (occurrence: JP)
  Receive Date: 20120727
  Receipt Date: 20120925
  Transmission Date: 20130627
  Serious: Yes (Life-Threatening)
  Sender: FDA-Public Use
  Company Number: JP-AMGEN-JPNCT2012046838

PATIENT
  Age: 80 Year
  Sex: Male
  Weight: 62 kg

DRUGS (20)
  1. DARBEPOETIN ALFA [Suspect]
     Indication: NEPHROGENIC ANAEMIA
     Dosage: 30 mug, q2wk
     Route: 058
     Dates: start: 20110905, end: 20111003
  2. DARBEPOETIN ALFA [Suspect]
     Dosage: 60 mug, qd
     Route: 058
     Dates: start: 20111017, end: 20111017
  3. DARBEPOETIN ALFA [Suspect]
     Dosage: 90 mug, qd
     Route: 058
     Dates: start: 20111124, end: 20111124
  4. DARBEPOETIN ALFA [Suspect]
     Dosage: 90 mug, qd
     Route: 058
     Dates: start: 20111211, end: 20111211
  5. LANTUS [Concomitant]
     Indication: DIABETIC NEPHROPATHY
     Dosage: UNK
     Route: 058
  6. NOVOLIN R [Concomitant]
     Indication: DIABETIC NEPHROPATHY
     Dosage: UNK
     Route: 058
  7. AMLODIN [Concomitant]
     Dosage: UNK
     Route: 048
  8. CARDENALIN [Concomitant]
     Dosage: UNK
     Route: 048
  9. NITRODERM [Concomitant]
     Dosage: UNK
     Route: 062
  10. ALOSITOL [Concomitant]
     Dosage: UNK
     Route: 048
  11. PLAVIX [Concomitant]
     Dosage: UNK
     Route: 048
  12. LASIX [Concomitant]
     Dosage: UNK
     Route: 048
  13. LENDORMIN [Concomitant]
     Dosage: UNK
     Route: 048
  14. OMEPRAL [Concomitant]
     Dosage: UNK
     Route: 048
  15. GLAKAY [Concomitant]
     Dosage: UNK
     Route: 048
  16. TOYOFAROL [Concomitant]
     Dosage: UNK
     Route: 048
  17. PRIMOBOLAN [Concomitant]
     Dosage: UNK
     Route: 048
  18. MEROPEN [Concomitant]
     Dosage: UNK
     Route: 041
  19. AKINETON [Concomitant]
     Dosage: UNK
     Route: 030
  20. FINIBAX [Concomitant]
     Dosage: UNK
     Route: 041

REACTIONS (4)
  - Hyperkalaemia [Recovered/Resolved]
  - Arrhythmia [Recovered/Resolved]
  - Pneumonia [Recovered/Resolved]
  - Restlessness [Recovering/Resolving]
